FAERS Safety Report 4703237-7 (Version None)
Quarter: 2005Q2

REPORT INFORMATION
  Report Type: 
  Country: None (occurrence: None)
  Receive Date: 20050628
  Receipt Date: 20050610
  Transmission Date: 20051028
  Serious: Yes (Hospitalization)
  Sender: FDA-Public Use
  Company Number: DSA_26354_2005

PATIENT
  Age: 54 Year
  Sex: Female

DRUGS (6)
  1. DILTIAZEM HCL [Suspect]
     Dosage: DF
     Dates: start: 20020726, end: 20020829
  2. GLYBURIDE [Suspect]
     Indication: DIABETES MELLITUS
     Dosage: 2.5 MG PO
     Route: 048
     Dates: start: 20020701, end: 20020822
  3. GLYBURIDE [Suspect]
     Indication: DIABETES MELLITUS
     Dosage: DF
     Dates: start: 20020829, end: 20020830
  4. TICLOPIDINE HCL [Suspect]
     Indication: ANGINA PECTORIS
     Dosage: 200 MG PO
     Route: 048
     Dates: start: 20020726, end: 20020822
  5. ISOSORBIDE MONONITRATE [Suspect]
     Indication: ANGINA PECTORIS
     Dosage: 40 MG PO
     Route: 048
     Dates: start: 20020726, end: 20020830
  6. ASPIRIN [Concomitant]

REACTIONS (5)
  - ALANINE AMINOTRANSFERASE INCREASED [None]
  - ASPARTATE AMINOTRANSFERASE INCREASED [None]
  - GAMMA-GLUTAMYLTRANSFERASE INCREASED [None]
  - LIVER DISORDER [None]
  - NASOPHARYNGITIS [None]
